FAERS Safety Report 10083779 (Version 2)
Quarter: 2014Q2

REPORT INFORMATION
  Report Type: Spontaneous
  Country: US (occurrence: US)
  Receive Date: 20140417
  Receipt Date: 20140424
  Transmission Date: 20141212
  Serious: No
  Sender: FDA-Public Use
  Company Number: US-VERTEX PHARMACEUTICALS INC-2014-001882

PATIENT
  Sex: Female

DRUGS (2)
  1. INCIVEK [Suspect]
     Indication: HEPATITIS C
  2. VELCADE [Suspect]
     Dosage: UNK

REACTIONS (1)
  - Platelet count decreased [Not Recovered/Not Resolved]
